FAERS Safety Report 6305401-2 (Version None)
Quarter: 2009Q3

REPORT INFORMATION
  Report Type: 
  Country: None (occurrence: None)
  Receive Date: 20090807
  Receipt Date: 20090730
  Transmission Date: 20100115
  Serious: Yes (Hospitalization)
  Sender: FDA-Public Use
  Company Number: OSCN-NO-0908S-0379

PATIENT
  Age: 58 Year
  Sex: Male

DRUGS (1)
  1. OMNISCAN [Suspect]
     Indication: DRUG USE FOR UNKNOWN INDICATION
     Dosage: SINGLE DOSE, I.V.
     Route: 042
     Dates: start: 20040601, end: 20040601

REACTIONS (16)
  - BONE PAIN [None]
  - ECZEMA [None]
  - FATIGUE [None]
  - GAIT DISTURBANCE [None]
  - GENERAL PHYSICAL HEALTH DETERIORATION [None]
  - IMPAIRED HEALING [None]
  - MOVEMENT DISORDER [None]
  - NAUSEA [None]
  - OEDEMA PERIPHERAL [None]
  - PERITONITIS [None]
  - PODAGRA [None]
  - PRURITUS [None]
  - RESTLESS LEGS SYNDROME [None]
  - SKIN ULCER [None]
  - VOMITING [None]
  - WALKING AID USER [None]
